FAERS Safety Report 6574516-6 (Version None)
Quarter: 2010Q1

REPORT INFORMATION
  Report Type: 
  Country: None (occurrence: None)
  Receive Date: 20100209
  Receipt Date: 20091103
  Transmission Date: 20100710
  Serious: No
  Sender: FDA-Public Use
  Company Number: A0814752A

PATIENT
  Age: 48 Year
  Sex: Female

DRUGS (9)
  1. PAROXETINE HCL [Suspect]
     Indication: DEPRESSION
     Dosage: 30MG PER DAY
     Route: 048
     Dates: start: 20090101, end: 20090101
  2. PAXIL [Suspect]
     Indication: DEPRESSION
     Dosage: 20MG PER DAY
     Route: 048
     Dates: start: 20070101
  3. XANAX [Concomitant]
  4. NORCO [Concomitant]
  5. PRILOSEC [Concomitant]
  6. LOPID [Concomitant]
  7. LOVAZA [Concomitant]
  8. MULTI-VITAMIN [Concomitant]
  9. PROVENTIL [Concomitant]

REACTIONS (5)
  - DRUG INEFFECTIVE [None]
  - EMOTIONAL DISORDER [None]
  - HEADACHE [None]
  - NERVOUSNESS [None]
  - STRESS [None]
